FAERS Safety Report 6771331-5 (Version None)
Quarter: 2010Q2

REPORT INFORMATION
  Report Type: 
  Country: None (occurrence: None)
  Receive Date: 20100616
  Receipt Date: 20100608
  Transmission Date: 20101027
  Serious: Yes (Other)
  Sender: FDA-Public Use
  Company Number: US-PERRIGO-10US010337

PATIENT
  Age: 3 Year
  Sex: Female
  Weight: 11.338 kg

DRUGS (1)
  1. DIBROMM PE GRP ELIXIR 906 [Suspect]
     Indication: ACCIDENTAL DRUG INTAKE BY CHILD
     Dosage: 120 ML, SINGLE
     Route: 048
     Dates: start: 20100608, end: 20100608

REACTIONS (1)
  - ACCIDENTAL OVERDOSE [None]
